FAERS Safety Report 24833882 (Version 1)
Quarter: 2025Q1

REPORT INFORMATION
  Report Type: Spontaneous
  Country: US (occurrence: US)
  Receive Date: 20250112
  Receipt Date: 20250112
  Transmission Date: 20250409
  Serious: No
  Sender: JOHNSON AND JOHNSON
  Company Number: US-KENVUE-20241204739

PATIENT

DRUGS (1)
  1. INFANTS TYLENOL [Suspect]
     Active Substance: ACETAMINOPHEN
     Indication: Product used for unknown indication
     Route: 065

REACTIONS (3)
  - Vomiting [Unknown]
  - Product use issue [Unknown]
  - Product administered to patient of inappropriate age [Unknown]
